FAERS Safety Report 21866069 (Version 4)
Quarter: 2024Q4

REPORT INFORMATION
  Report Type: Spontaneous
  Country: GR (occurrence: GR)
  Receive Date: 20230116
  Receipt Date: 20241116
  Transmission Date: 20250115
  Serious: Yes (Other)
  Sender: ROCHE
  Company Number: GR-BAXTER-2023BAX010041

PATIENT
  Sex: Male

DRUGS (7)
  1. POLIVY [Suspect]
     Active Substance: POLATUZUMAB VEDOTIN-PIIQ
     Indication: Richter^s syndrome
     Dosage: DRUG SEPARATE DOSAGE NUMBER: 1
     Route: 065
  2. RITUXIMAB [Suspect]
     Active Substance: RITUXIMAB
     Indication: Richter^s syndrome
     Dosage: DRUG SEPARATE DOSAGE NUMBER: 1
     Route: 065
  3. IMBRUVICA [Suspect]
     Active Substance: IBRUTINIB
     Indication: Richter^s syndrome
     Dosage: DRUG SEPARATE DOSAGE NUMBER: 1
     Route: 065
  4. DOXORUBICIN HYDROCHLORIDE [Suspect]
     Active Substance: DOXORUBICIN HYDROCHLORIDE
     Indication: Richter^s syndrome
     Dosage: DRUG SEPARATE DOSAGE NUMBER:1
     Route: 065
  5. PREDNISOLONE [Suspect]
     Active Substance: PREDNISOLONE
     Indication: Richter^s syndrome
     Dosage: DRUG SEPARATE DOSAGE NUMBER: 1
     Route: 065
  6. CYCLOPHOSPHAMIDE [Suspect]
     Active Substance: CYCLOPHOSPHAMIDE
     Indication: Richter^s syndrome
     Dosage: DRUG SEPARATE DOSAGE NUMBER: 1
     Route: 065
  7. VINCRISTINE [Suspect]
     Active Substance: VINCRISTINE
     Indication: Richter^s syndrome
     Dosage: DRUG SEPARATE DOSAGE NUMBER: 1
     Route: 065

REACTIONS (3)
  - Richter^s syndrome [Unknown]
  - COVID-19 [Recovered/Resolved]
  - Disease progression [Unknown]
